FAERS Safety Report 17213263 (Version 5)
Quarter: 2020Q2

REPORT INFORMATION
  Report Type: Spontaneous
  Country: US (occurrence: US)
  Receive Date: 20191230
  Receipt Date: 20200625
  Transmission Date: 20200713
  Serious: Yes (Hospitalization, Other)
  Sender: FDA-Public Use
  Company Number: US-GLAXOSMITHKLINE-US2019233361

PATIENT
  Age: 31 Year
  Sex: Female

DRUGS (1)
  1. BENLYSTA [Suspect]
     Active Substance: BELIMUMAB
     Indication: PRODUCT USED FOR UNKNOWN INDICATION
     Dosage: 200 MG/ML, CYC
     Route: 058
     Dates: start: 20191003

REACTIONS (11)
  - Hyperthyroidism [Recovered/Resolved]
  - Back pain [Recovered/Resolved]
  - Nephrolithiasis [Recovered/Resolved]
  - Ureteral stent insertion [Recovered/Resolved]
  - Urine abnormality [Recovered/Resolved]
  - Product complaint [Unknown]
  - Product dose omission [Unknown]
  - Infection [Recovered/Resolved]
  - Hyperaesthesia teeth [Recovered/Resolved]
  - Pyrexia [Recovered/Resolved]
  - White blood cell count increased [Recovered/Resolved]

NARRATIVE: CASE EVENT DATE: 201910
